FAERS Safety Report 6445328-9 (Version None)
Quarter: 2009Q4

REPORT INFORMATION
  Report Type: 
  Country: None (occurrence: None)
  Receive Date: 20091112
  Receipt Date: 20091103
  Transmission Date: 20100525
  Serious: Yes (Hospitalization)
  Sender: FDA-Public Use
  Company Number: 8054087

PATIENT
  Sex: Female

DRUGS (4)
  1. KEPPRA [Suspect]
     Indication: CONVULSION
     Dosage: NI TRP
     Route: 064
  2. DILANTIN [Suspect]
     Indication: CONVULSION
     Dosage: NI TRP
     Route: 064
  3. COCAINE [Suspect]
     Dosage: NI TRP
     Route: 064
  4. NEXIUM [Concomitant]

REACTIONS (5)
  - CAESAREAN SECTION [None]
  - DEVELOPMENTAL DELAY [None]
  - MATERNAL DRUGS AFFECTING FOETUS [None]
  - PREMATURE BABY [None]
  - PULMONARY MALFORMATION [None]
